FAERS Safety Report 12501184 (Version 2)
Quarter: 2016Q3

REPORT INFORMATION
  Report Type: Report from Study
  Country: US (occurrence: US)
  Receive Date: 20160627
  Receipt Date: 20160713
  Transmission Date: 20161109
  Serious: Yes (Hospitalization)
  Sender: FDA-Public Use
  Company Number: US-CELGENEUS-USA-2016065907

PATIENT
  Age: 65 Year
  Sex: Male
  Weight: 97.05 kg

DRUGS (4)
  1. ABRAXANE [Suspect]
     Active Substance: PACLITAXEL
     Indication: SQUAMOUS CELL CARCINOMA OF LUNG
     Dosage: 217 MILLIGRAM/SQ. METER
     Route: 041
     Dates: start: 20160526, end: 20160609
  2. NECITUMUMAB [Suspect]
     Active Substance: NECITUMUMAB
     Indication: SQUAMOUS CELL CARCINOMA OF LUNG
     Route: 041
     Dates: start: 20160526, end: 20160602
  3. NECITUMUMAB [Suspect]
     Active Substance: NECITUMUMAB
     Dosage: 709 MILLIGRAM
     Route: 041
     Dates: start: 20160627
  4. CARBOPLATIN. [Suspect]
     Active Substance: CARBOPLATIN
     Indication: SQUAMOUS CELL CARCINOMA OF LUNG
     Route: 041
     Dates: start: 20160526, end: 20160526

REACTIONS (2)
  - Atrial fibrillation [Recovered/Resolved]
  - Leukopenia [Recovered/Resolved]

NARRATIVE: CASE EVENT DATE: 20160614
